FAERS Safety Report 7552720-8 (Version None)
Quarter: 2011Q2

REPORT INFORMATION
  Report Type: 
  Country: None (occurrence: None)
  Receive Date: 20110616
  Receipt Date: 20110318
  Transmission Date: 20111010
  Serious: No
  Sender: FDA-Public Use
  Company Number: US-ABBOTT-11P-163-0712638-00

PATIENT
  Sex: Male

DRUGS (3)
  1. TRILIPIX [Suspect]
     Indication: BLOOD TRIGLYCERIDES INCREASED
  2. TRILIPIX [Suspect]
     Indication: BLOOD CHOLESTEROL INCREASED
  3. TRILIPIX [Suspect]
     Indication: LOW DENSITY LIPOPROTEIN INCREASED

REACTIONS (1)
  - LIPIDS INCREASED [None]
